FAERS Safety Report 9832841 (Version 2)
Quarter: 2014Q1

REPORT INFORMATION
  Report Type: Spontaneous
  Country: CA (occurrence: CA)
  Receive Date: 20140121
  Receipt Date: 20140205
  Transmission Date: 20141002
  Serious: Yes (Life-Threatening, Hospitalization)
  Sender: FDA-Public Use
  Company Number: CA-CELGENEUS-028-21880-14012274

PATIENT
  Age: 68 Year
  Sex: Female
  Weight: 68.9 kg

DRUGS (9)
  1. REVLIMID [Suspect]
     Indication: PLASMA CELL MYELOMA
     Dosage: 10 MILLIGRAM
     Route: 048
     Dates: start: 20131030, end: 20140109
  2. DEXAMETHASONE [Suspect]
     Indication: PLASMA CELL MYELOMA
     Dosage: 40 MILLIGRAM
     Route: 048
     Dates: start: 20131030, end: 20140109
  3. MLN9708 [Suspect]
     Indication: PLASMA CELL MYELOMA
     Dosage: 4 MILLIGRAM
     Route: 048
     Dates: start: 20131030, end: 20140109
  4. ASA [Concomitant]
     Indication: THROMBOSIS PROPHYLAXIS
     Dosage: 81 MILLIGRAM
     Route: 048
     Dates: start: 20131031
  5. CARVEDILOL [Concomitant]
     Indication: HYPERTENSION
     Dosage: 50 MILLIGRAM
     Route: 048
     Dates: start: 201112
  6. FENTANYL [Concomitant]
     Indication: PLASMA CELL MYELOMA
     Route: 062
     Dates: start: 2013
  7. PANTOPRAZOLE [Concomitant]
     Indication: GASTROOESOPHAGEAL REFLUX DISEASE
     Dosage: 40 GRAM
     Route: 048
     Dates: start: 201112
  8. VALACYCLOVIR [Concomitant]
     Indication: PROPHYLAXIS
     Dosage: 500 GRAM
     Route: 048
     Dates: start: 201202
  9. EPINEPHRINE [Concomitant]
     Indication: PRODUCT USED FOR UNKNOWN INDICATION
     Route: 065
     Dates: start: 20140113

REACTIONS (1)
  - Pneumonia influenzal [Not Recovered/Not Resolved]
